FAERS Safety Report 12909366 (Version 1)
Quarter: 2016Q4

REPORT INFORMATION
  Report Type: Spontaneous
  Country: GR (occurrence: GR)
  Receive Date: 20161104
  Receipt Date: 20161104
  Transmission Date: 20170207
  Serious: Yes (Other)
  Sender: FDA-Public Use
  Company Number: GR-ROCHE-1848721

PATIENT
  Age: 55 Year
  Sex: Female

DRUGS (3)
  1. LETROZOLE. [Concomitant]
     Active Substance: LETROZOLE
     Route: 065
     Dates: start: 201203
  2. BEVACIZUMAB [Suspect]
     Active Substance: BEVACIZUMAB
     Indication: BREAST CANCER METASTATIC
     Dosage: MAINTANANCE TREATMENT 15 MG/KG
     Route: 065
     Dates: start: 201111, end: 201505
  3. PACLITAXEL. [Concomitant]
     Active Substance: PACLITAXEL
     Indication: BREAST CANCER METASTATIC
     Dosage: 3 WEEKS ON-1 WEEK OFF
     Route: 065
     Dates: start: 201111

REACTIONS (12)
  - Jugular vein thrombosis [Unknown]
  - Deep vein thrombosis [Unknown]
  - Face oedema [Unknown]
  - Vaginal haemorrhage [Unknown]
  - Chest pain [Unknown]
  - Lymphadenopathy [Unknown]
  - Pain [Unknown]
  - Epistaxis [Unknown]
  - Proteinuria [Unknown]
  - Hypertension [Unknown]
  - Axillary pain [Unknown]
  - Subclavian vein thrombosis [Unknown]
